FAERS Safety Report 5285539-1 (Version None)
Quarter: 2007Q1

REPORT INFORMATION
  Report Type: 
  Country: None (occurrence: None)
  Receive Date: 20061227
  Receipt Date: 20061017
  Transmission Date: 20070707
  Serious: Yes (Other)
  Sender: FDA-Public Use
  Company Number: A03200606300

PATIENT
  Age: 69 Year
  Sex: Female

DRUGS (1)
  1. AMBIEN [Suspect]
     Indication: SLEEP DISORDER
     Dosage: 12.5 MG HS - ORAL
     Route: 048
     Dates: start: 20061013, end: 20061016

REACTIONS (5)
  - HALLUCINATION [None]
  - HEADACHE [None]
  - PAIN [None]
  - PRURITUS [None]
  - TREMOR [None]
